FAERS Safety Report 5171654-X (Version None)
Quarter: 2006Q4

REPORT INFORMATION
  Report Type: 
  Country: None (occurrence: None)
  Receive Date: 20061205
  Receipt Date: 20061115
  Transmission Date: 20070319
  Serious: Yes (Death, Hospitalization)
  Sender: FDA-Public Use
  Company Number: APP200600305

PATIENT
  Age: 86 Year
  Sex: Female

DRUGS (4)
  1. HEPARIN SODIUM [Suspect]
     Indication: STENT OCCLUSION
     Dosage: (USP U/ML, D), IV
     Route: 042
     Dates: start: 20061001, end: 20061001
  2. PLAVIX [Suspect]
     Indication: STENT OCCLUSION
     Dosage: (75 MG, 1 IN 1 D)
     Dates: start: 20061001, end: 20061001
  3. ACTIVASE [Suspect]
     Indication: STENT OCCLUSION
     Dates: start: 20061001, end: 20061001
  4. ASPIRIN [Concomitant]

REACTIONS (1)
  - HAEMORRHAGE [None]
